FAERS Safety Report 15107622 (Version 2)
Quarter: 2018Q3

REPORT INFORMATION
  Report Type: Report from Study
  Country: IT (occurrence: IT)
  Receive Date: 20180704
  Receipt Date: 20180704
  Transmission Date: 20181010
  Serious: Yes (Hospitalization)
  Sender: FDA-Public Use
  Company Number: IT-TEVA-2018-IT-918866

PATIENT
  Age: 64 Year
  Sex: Female

DRUGS (4)
  1. DULOXETINE HYDROCHLORIDE. [Suspect]
     Active Substance: DULOXETINE HYDROCHLORIDE
     Indication: DEPRESSION
     Dosage: 120 MILLIGRAM DAILY;
     Route: 048
  2. SEROQUEL [Suspect]
     Active Substance: QUETIAPINE FUMARATE
     Indication: BIPOLAR DISORDER
     Dosage: 100 MILLIGRAM DAILY; EXTENDED?RELEASE TABLETS
     Route: 048
  3. DEPAKIN CHRONO 300 MG COMPRESSE A RILASCIO PROLUNGATO [Suspect]
     Active Substance: VALPROIC ACID
     Indication: BIPOLAR DISORDER
     Dosage: 600 MILLIGRAM DAILY; CHRONO, EXTENDED?RELEASE
     Route: 048
  4. TAVOR (LORAZEPAM) [Suspect]
     Active Substance: LORAZEPAM
     Indication: ANXIETY
     Dosage: 1 DOSAGE FORMS DAILY; 2,5 MG
     Route: 048

REACTIONS (6)
  - Confusional state [Recovering/Resolving]
  - Extrapyramidal disorder [Recovering/Resolving]
  - Reduced facial expression [Recovering/Resolving]
  - Mydriasis [Recovering/Resolving]
  - Acute kidney injury [Recovering/Resolving]
  - Dyskinesia [Recovering/Resolving]

NARRATIVE: CASE EVENT DATE: 20171025
